FAERS Safety Report 25494761 (Version 1)
Quarter: 2025Q2

REPORT INFORMATION
  Report Type: Report from Study
  Country: GB (occurrence: GB)
  Receive Date: 20250630
  Receipt Date: 20250630
  Transmission Date: 20250717
  Serious: Yes (Other)
  Sender: SANDOZ
  Company Number: GB-SANDOZ-SDZ2024GB080208

PATIENT
  Sex: Female

DRUGS (2)
  1. OMNITROPE [Suspect]
     Active Substance: SOMATROPIN
     Indication: Hyperpituitarism
     Dosage: 0.30 MG, QD (CARTRIDGES)
     Route: 058
     Dates: start: 20240731
  2. OMNITROPE [Suspect]
     Active Substance: SOMATROPIN
     Route: 058

REACTIONS (9)
  - Neoplasm malignant [Unknown]
  - Fatigue [Not Recovered/Not Resolved]
  - Weight increased [Not Recovered/Not Resolved]
  - Gait disturbance [Unknown]
  - Injection site bruising [Not Recovered/Not Resolved]
  - Headache [Not Recovered/Not Resolved]
  - Therapy change [Unknown]
  - Incorrect dose administered by device [Unknown]
  - Product dispensing error [Unknown]
